FAERS Safety Report 15697692 (Version 1)
Quarter: 2018Q4

REPORT INFORMATION
  Report Type: Spontaneous
  Country: CN (occurrence: CN)
  Receive Date: 20181207
  Receipt Date: 20181207
  Transmission Date: 20190205
  Serious: Yes (Hospitalization, Other)
  Sender: FDA-Public Use
  Company Number: CN-009507513-1811CHN012212

PATIENT
  Age: 60 Year
  Sex: Male

DRUGS (2)
  1. AMIODARONE [Suspect]
     Active Substance: AMIODARONE
     Indication: ARRHYTHMIA
     Dosage: 200 MILLIGRAM, TID
     Route: 048
  2. SIMVASTATIN. [Suspect]
     Active Substance: SIMVASTATIN
     Indication: HYPERLIPIDAEMIA
     Dosage: 20 MILLIGRAM, QD
     Route: 048

REACTIONS (2)
  - Rhabdomyolysis [Recovered/Resolved]
  - Renal failure [Recovered/Resolved]
